FAERS Safety Report 8452036-1 (Version None)
Quarter: 2012Q2

REPORT INFORMATION
  Report Type: 
  Country: None (occurrence: None)
  Receive Date: 20120620
  Receipt Date: 20120329
  Transmission Date: 20120825
  Serious: No
  Sender: FDA-Public Use
  Company Number: US-VERTEX PHARMACEUTICALS INC.-AE-2012-004568

PATIENT
  Sex: Female
  Weight: 72.64 kg

DRUGS (4)
  1. PEGASYS [Concomitant]
     Indication: HEPATITIS C
     Dates: start: 20120223
  2. RIBASPHERE [Concomitant]
     Indication: HEPATITIS C
     Dates: start: 20120223
  3. INCIVEK [Suspect]
     Indication: HEPATITIS C
     Route: 048
     Dates: start: 20120223
  4. THYROID MEDICATIONS [Concomitant]

REACTIONS (8)
  - FEELING COLD [None]
  - ANAEMIA [None]
  - TREMOR [None]
  - MALAISE [None]
  - VOMITING [None]
  - EPISTAXIS [None]
  - DISORIENTATION [None]
  - DIZZINESS [None]
